FAERS Safety Report 8167314-3 (Version None)
Quarter: 2012Q1

REPORT INFORMATION
  Report Type: 
  Country: None (occurrence: None)
  Receive Date: 20120227
  Receipt Date: 20120223
  Transmission Date: 20120608
  Serious: No
  Sender: FDA-Public Use
  Company Number: US-PFIZER INC-2012048943

PATIENT
  Sex: Female
  Weight: 108 kg

DRUGS (10)
  1. LEVOTHYROXINE SODIUM [Concomitant]
     Indication: HYPOTHYROIDISM
     Dosage: 125 MG, UNK
  2. METOPROLOL [Concomitant]
     Indication: HYPERTENSION
     Dosage: 50 MG, 2X/DAY
  3. CITRACAL [Concomitant]
     Dosage: 600 MG, UNK
  4. HALOPERIDOL [Concomitant]
     Indication: DEPRESSION
     Dosage: 5 MG, 1X/DAY
  5. ACETYLSALICYLIC ACID [Concomitant]
     Dosage: 81 MG, UNK
  6. METFORMIN [Concomitant]
     Indication: DIABETES MELLITUS
     Dosage: 1000 MG, UNK
  7. CHANTIX [Suspect]
     Indication: SMOKING CESSATION THERAPY
     Dosage: 0.5 MG, 1X/DAY
     Route: 048
     Dates: start: 20120219
  8. SIMVASTATIN [Concomitant]
     Indication: BLOOD CHOLESTEROL INCREASED
     Dosage: UNK
  9. NIACIN [Concomitant]
     Dosage: 1000 MG, UNK
  10. LISINOPRIL AND HYDROCHLOROTHIAZIDE [Concomitant]
     Indication: HYPERTENSION
     Dosage: 20/25 MG, 1X/DAY

REACTIONS (3)
  - HYPERHIDROSIS [None]
  - ANXIETY [None]
  - ANGER [None]
